FAERS Safety Report 8783100 (Version 2)
Quarter: 2012Q4

REPORT INFORMATION
  Report Type: 
  Country: US (occurrence: US)
  Receive Date: 20120914
  Receipt Date: 20121010
  Transmission Date: 20130627
  Serious: Yes (Hospitalization, Other)
  Sender: FDA-Public Use
  Company Number: US-ROCHE-1120333

PATIENT
  Age: 50 Year
  Sex: Female

DRUGS (12)
  1. XOLAIR [Suspect]
     Indication: PRODUCT USED FOR UNKNOWN INDICATION
  2. ADVAIR DISKUS [Concomitant]
     Indication: ASTHMA
     Dosage: 250/5 mg daily
     Route: 045
  3. ALBUTEROL [Concomitant]
     Indication: ASTHMA
     Route: 045
  4. NASONEX [Concomitant]
     Indication: ASTHMA
     Route: 045
  5. PREDNISONE [Concomitant]
     Indication: ASTHMA
     Route: 048
  6. SINGULAIR [Concomitant]
     Indication: ASTHMA
     Route: 048
  7. MICARDIS [Concomitant]
     Indication: HYPERTENSION
     Route: 048
  8. MEGESTROL [Concomitant]
     Route: 048
  9. METFORMIN [Concomitant]
     Indication: DIABETES MELLITUS
     Route: 048
  10. GLIPIZIDE [Concomitant]
     Indication: DIABETES MELLITUS
     Route: 048
  11. ASPIRIN [Concomitant]
     Route: 048
  12. SIMVASTATIN [Concomitant]
     Route: 048

REACTIONS (7)
  - Pruritus [Unknown]
  - Depressed level of consciousness [Unknown]
  - Hot flush [Unknown]
  - Blood pressure increased [Unknown]
  - Peripheral coldness [Unknown]
  - Dyspnoea [Unknown]
  - Adverse drug reaction [Unknown]
